FAERS Safety Report 11492568 (Version 1)
Quarter: 2015Q3

REPORT INFORMATION
  Report Type: Spontaneous
  Country: JP (occurrence: JP)
  Receive Date: 20150910
  Receipt Date: 20150910
  Transmission Date: 20151125
  Serious: Yes (Other)
  Sender: FDA-Public Use
  Company Number: JP-ALLERGAN-1518350US

PATIENT
  Age: 76 Year
  Sex: Female

DRUGS (2)
  1. INTAL [Concomitant]
     Active Substance: CROMOLYN SODIUM
     Indication: PRODUCT USED FOR UNKNOWN INDICATION
     Dosage: UNK
     Dates: start: 20150829, end: 20150831
  2. ALPHAGAN P [Suspect]
     Active Substance: BRIMONIDINE TARTRATE
     Indication: NORMAL TENSION GLAUCOMA
     Dosage: 2 GTT, BID
     Route: 047
     Dates: start: 20150829, end: 20150831

REACTIONS (1)
  - Intraocular pressure increased [Recovering/Resolving]

NARRATIVE: CASE EVENT DATE: 20150831
